FAERS Safety Report 9233147 (Version 1)
Quarter: 2013Q2

REPORT INFORMATION
  Report Type: Spontaneous
  Country: US (occurrence: None)
  Receive Date: 20130415
  Receipt Date: 20130415
  Transmission Date: 20140414
  Serious: Yes (Hospitalization)
  Sender: FDA-Public Use
  Company Number: None

PATIENT
  Age: 32 Year
  Sex: Female
  Weight: 64.5 kg

DRUGS (6)
  1. LIDOCAINE [Suspect]
     Indication: LOCAL ANAESTHESIA
     Dosage: 5ML NEBULIZED X1
     Dates: start: 20120130
  2. NECON [Concomitant]
  3. SERTRALINE [Concomitant]
  4. BUPROPRION XL [Concomitant]
  5. AMITIZA [Concomitant]
  6. DEPLIN [Concomitant]

REACTIONS (4)
  - Drug intolerance [None]
  - Crepitations [None]
  - Wheezing [None]
  - Respiratory tract congestion [None]
